FAERS Safety Report 7456166-2 (Version None)
Quarter: 2011Q2

REPORT INFORMATION
  Report Type: 
  Country: None (occurrence: None)
  Receive Date: 20110426
  Receipt Date: 20110407
  Transmission Date: 20111010
  Serious: Yes (Hospitalization)
  Sender: FDA-Public Use
  Company Number: US-SEPTODONT-201100064

PATIENT
  Age: 27 Year
  Sex: Female

DRUGS (1)
  1. LIDOCAINE HYDROCHLORIDE 2% W/ EPINEPHRINE INJ [Suspect]
     Indication: LOCAL ANAESTHESIA
     Dosage: MANDIBULAR INFILTRATION TECHNIQUE DENTAL
     Route: 004

REACTIONS (2)
  - PANIC REACTION [None]
  - BLINDNESS TRANSIENT [None]
